FAERS Safety Report 4377696-6 (Version None)
Quarter: 2004Q2

REPORT INFORMATION
  Report Type: 
  Country: None (occurrence: None)
  Receive Date: 20040608
  Receipt Date: 20040527
  Transmission Date: 20050107
  Serious: Yes (Hospitalization)
  Sender: FDA-Public Use
  Company Number: 2003190014FR

PATIENT
  Age: 73 Year
  Sex: Female
  Weight: 73 kg

DRUGS (10)
  1. CELEBREX [Suspect]
     Indication: RHEUMATOID ARTHRITIS
     Dosage: SEE IMAGE
     Route: 048
     Dates: end: 20031001
  2. PRACTAZIN (SPIRONOLACTONE, ALTHIAZIDE) TABLET [Suspect]
     Indication: HYPERTENSION
     Dosage: 1 DF, ORAL
     Route: 048
     Dates: end: 20031030
  3. METHOTREXATE [Suspect]
     Indication: RHEUMATOID ARTHRITIS
     Dosage: 10 5 MG, WEEKLY, ORAL
     Route: 048
     Dates: start: 20030501, end: 20031030
  4. PREDNISONE TAB [Suspect]
     Indication: RHEUMATOID ARTHRITIS
     Dosage: 10 MG, QD, ORAL
     Route: 048
     Dates: end: 20031106
  5. LIPANOR (CIPROFIBRATE) [Suspect]
     Indication: DYSLIPIDAEMIA
     Dosage: 100 MG, QD, ORAL
     Route: 048
     Dates: end: 20031030
  6. PROPRANOLOL [Concomitant]
  7. DEBRIDAT [Concomitant]
  8. MOPRAL [Concomitant]
  9. DAFALGAN [Concomitant]
  10. CYCLADOL [Concomitant]

REACTIONS (5)
  - ALVEOLITIS [None]
  - DYSPNOEA [None]
  - LUNG ABSCESS [None]
  - PNEUMONITIS [None]
  - PULMONARY FIBROSIS [None]
